FAERS Safety Report 12552259 (Version 1)
Quarter: 2016Q3

REPORT INFORMATION
  Report Type: Spontaneous
  Country: US (occurrence: None)
  Receive Date: 20160712
  Receipt Date: 20160712
  Transmission Date: 20161109
  Serious: No
  Sender: FDA-Public Use
  Company Number: None

PATIENT
  Age: 71 Year
  Sex: Female
  Weight: 71.22 kg

DRUGS (6)
  1. GLUCOSAMINE/CHONDROITIN /08437701/ [Concomitant]
     Active Substance: CHONDROITIN SULFATE (BOVINE)\GLUCOSAMINE SULFATE
  2. VITAMIN C [Concomitant]
     Active Substance: ASCORBIC ACID
  3. CIPROFLOXACN 500MG TAB WEST-WARD; GENERIC FOR CIPRO 500MG [Suspect]
     Active Substance: CIPROFLOXACIN HYDROCHLORIDE
     Indication: URINARY TRACT INFECTION
     Dosage: 1 PILL TWICE DAILY BY MOUTH
     Route: 048
     Dates: start: 20160610, end: 20160612
  4. CALCIUM W/VIT D [Concomitant]
  5. BABY ASPIRIN [Concomitant]
     Active Substance: ASPIRIN
  6. MULTI VITAMIN - NO IRON [Concomitant]

REACTIONS (5)
  - Middle insomnia [None]
  - Swollen tongue [None]
  - Rash [None]
  - Rash pruritic [None]
  - Insomnia [None]

NARRATIVE: CASE EVENT DATE: 20160610
